FAERS Safety Report 24053186 (Version 1)
Quarter: 2024Q3

REPORT INFORMATION
  Report Type: Spontaneous
  Country: US (occurrence: US)
  Receive Date: 20240705
  Receipt Date: 20240705
  Transmission Date: 20241017
  Serious: Yes (Other)
  Sender: CIPLA
  Company Number: US-CIPLA LTD.-2024US06936

PATIENT

DRUGS (4)
  1. IRINOTECAN [Suspect]
     Active Substance: IRINOTECAN
     Indication: Medulloblastoma recurrent
     Dosage: 125 MG/M2/DOSE DAYS 1, 8
     Route: 042
  2. CYCLOPHOSPHAMIDE [Suspect]
     Active Substance: CYCLOPHOSPHAMIDE
     Indication: Medulloblastoma recurrent
     Dosage: 1500 MG/M2/DOSE DAYS 1, 2
     Route: 042
  3. TEMOZOLOMIDE [Suspect]
     Active Substance: TEMOZOLOMIDE
     Indication: Medulloblastoma recurrent
     Dosage: 150 MG/M2/DOSE Q DAY ON DAYS 1-5 (QD)
     Route: 048
  4. ETOPOSIDE [Suspect]
     Active Substance: ETOPOSIDE
     Indication: Medulloblastoma recurrent
     Dosage: 50 MG/M2/DOSE Q DAY ON DAYS 1-7 (QD)
     Route: 048

REACTIONS (3)
  - Seizure [Unknown]
  - Myelosuppression [Unknown]
  - Hyponatraemia [Unknown]
